FAERS Safety Report 7183724-5 (Version None)
Quarter: 2010Q4

REPORT INFORMATION
  Report Type: 
  Country: None (occurrence: None)
  Receive Date: 20101220
  Receipt Date: 20101220
  Transmission Date: 20110411
  Serious: Yes (Hospitalization)
  Sender: FDA-Public Use
  Company Number: None

PATIENT
  Age: 68 Year
  Sex: Male
  Weight: 101.3 kg

DRUGS (5)
  1. COUMADIN [Suspect]
     Dosage: 2.5MG / 5MG MTWTHF SUN/SAT PO/PO RECENT
     Route: 048
  2. ASPIRIN [Suspect]
     Dosage: 81MG DAILY PO RECENT
     Route: 048
  3. ZYRTEC [Concomitant]
  4. TYLENOL [Concomitant]
  5. METOPROLOL [Concomitant]

REACTIONS (2)
  - INTERNATIONAL NORMALISED RATIO INCREASED [None]
  - SUBDURAL HAEMATOMA [None]
